FAERS Safety Report 12233285 (Version 2)
Quarter: 2016Q2

REPORT INFORMATION
  Report Type: Report from Study
  Country: CA (occurrence: CA)
  Receive Date: 20160404
  Receipt Date: 20160411
  Transmission Date: 20160815
  Serious: Yes (Other)
  Sender: FDA-Public Use
  Company Number: CA-ROCHE-1387581

PATIENT
  Sex: Female

DRUGS (10)
  1. MAXIDEX [Concomitant]
     Active Substance: DEXAMETHASONE
  2. LIPITOR [Concomitant]
     Active Substance: ATORVASTATIN CALCIUM
  3. ACETAMINOPHEN. [Concomitant]
     Active Substance: ACETAMINOPHEN
     Indication: PREMEDICATION
     Route: 048
     Dates: start: 20101115
  4. METHYLPREDNISOLONE. [Concomitant]
     Active Substance: METHYLPREDNISOLONE
     Indication: PREMEDICATION
     Route: 042
     Dates: start: 20101115
  5. FLUOXETINE [Concomitant]
     Active Substance: FLUOXETINE HYDROCHLORIDE
  6. RITUXAN [Suspect]
     Active Substance: RITUXIMAB
     Indication: OCULAR PEMPHIGOID
     Dosage: MOST RECENT DOSE: 22/MAY/2013?LAST DOSE OF RITUXIMAB: 26/MAY/2014
     Route: 042
     Dates: start: 20101115
  7. DIPHENHYDRAMINE HYDROCHLORIDE. [Concomitant]
     Active Substance: DIPHENHYDRAMINE HYDROCHLORIDE
     Indication: PREMEDICATION
     Route: 048
     Dates: start: 20101115
  8. ASA [Concomitant]
     Active Substance: ASPIRIN
  9. XALATAN [Concomitant]
     Active Substance: LATANOPROST
  10. FOSAVANCE [Concomitant]
     Active Substance: ALENDRONATE SODIUM\CHOLECALCIFEROL

REACTIONS (6)
  - Ocular pemphigoid [Not Recovered/Not Resolved]
  - Off label use [Unknown]
  - Eye disorder [Unknown]
  - Lung neoplasm malignant [Unknown]
  - Pneumonia [Recovered/Resolved]
  - Visual acuity reduced [Not Recovered/Not Resolved]

NARRATIVE: CASE EVENT DATE: 2015
